FAERS Safety Report 18096850 (Version 1)
Quarter: 2020Q3

REPORT INFORMATION
  Report Type: Not Available
  Country: US (occurrence: US)
  Receive Date: 20200730
  Receipt Date: 20200730
  Transmission Date: 20201103
  Serious: No
  Sender: FDA-Public Use
  Company Number: US-NEUROCRINE BIOSCIENCES INC.-2020NBI02554

PATIENT
  Age: 63 Year
  Sex: Female

DRUGS (3)
  1. PROLIXIN [Concomitant]
     Active Substance: FLUPHENAZINE HYDROCHLORIDE
  2. INGREZZA [Suspect]
     Active Substance: VALBENAZINE
     Indication: TARDIVE DYSKINESIA
     Route: 048
  3. CLOZARIL [Concomitant]
     Active Substance: CLOZAPINE

REACTIONS (7)
  - Urinary tract infection [Unknown]
  - SARS-CoV-2 test positive [Unknown]
  - Renal injury [Unknown]
  - Sedation [Unknown]
  - Psychotic disorder [Unknown]
  - Hypotension [Unknown]
  - Confusional state [Unknown]
